FAERS Safety Report 6657997-9 (Version None)
Quarter: 2010Q1

REPORT INFORMATION
  Report Type: 
  Country: None (occurrence: None)
  Receive Date: 20100325
  Receipt Date: 20100315
  Transmission Date: 20100710
  Serious: Yes (Death, Other)
  Sender: FDA-Public Use
  Company Number: 2010AL001630

PATIENT
  Age: 13 Year
  Sex: Male

DRUGS (5)
  1. ACYCLOVIR [Suspect]
     Indication: MENINGITIS BACTERIAL
     Dosage: 750 MG; TID; IV
     Route: 042
  2. DEXAMETHASONE [Concomitant]
  3. CEFOTAXIME [Concomitant]
  4. VALPROIC ACID [Concomitant]
  5. FOSCARNET [Concomitant]

REACTIONS (8)
  - APHASIA [None]
  - CSF PROTEIN INCREASED [None]
  - DRUG INEFFECTIVE [None]
  - ENCEPHALITIS HERPES [None]
  - GLIOMA [None]
  - MALIGNANT NEOPLASM PROGRESSION [None]
  - SPASTIC DIPLEGIA [None]
  - STATUS EPILEPTICUS [None]
